FAERS Safety Report 10217800 (Version 2)
Quarter: 2014Q2

REPORT INFORMATION
  Report Type: Other
  Country: CA (occurrence: CA)
  Receive Date: 20140604
  Receipt Date: 20140604
  Transmission Date: 20141212
  Serious: Yes (Hospitalization, Other)
  Sender: FDA-Public Use
  Company Number: CA-GSKPPD-2014GSK008171

PATIENT
  Sex: Female

DRUGS (1)
  1. AVANDIA [Suspect]
     Indication: DIABETES MELLITUS
     Route: 048
     Dates: start: 20060902, end: 200904

REACTIONS (3)
  - Myocardial infarction [Recovered/Resolved]
  - Cardiac failure congestive [Recovered/Resolved]
  - Coronary artery disease [None]
